FAERS Safety Report 4542242-0 (Version None)
Quarter: 2004Q4

REPORT INFORMATION
  Report Type: 
  Country: None (occurrence: None)
  Receive Date: 20041227
  Receipt Date: 20041220
  Transmission Date: 20050328
  Serious: Yes (Death, Other)
  Sender: FDA-Public Use
  Company Number: USA-2004-0018097

PATIENT
  Age: 25 Year
  Sex: Male

DRUGS (5)
  1. OXYCODONE HCL [Suspect]
  2. XANAX [Suspect]
  3. COCAINE (COCAINE) [Suspect]
  4. OXYMORPHONE HYDROCHLORIDE [Suspect]
  5. MARIJUANA (CANNABIS) [Suspect]

REACTIONS (2)
  - GUN SHOT WOUND [None]
  - POLYSUBSTANCE ABUSE [None]
